FAERS Safety Report 15584580 (Version 1)
Quarter: 2018Q4

REPORT INFORMATION
  Report Type: Spontaneous
  Country: US (occurrence: US)
  Receive Date: 20181101
  Receipt Date: 20181101
  Transmission Date: 20190205
  Serious: No
  Sender: FDA-Public Use
  Company Number: None

PATIENT
  Age: 66 Year
  Sex: Female
  Weight: 90.72 kg

DRUGS (2)
  1. TREMFYA [Suspect]
     Active Substance: GUSELKUMAB
     Indication: PSORIASIS
     Dosage: AT WEEK 0,WEEK 4  AND EVERY 8 WEEKD THEREAFTER
     Route: 058
     Dates: start: 201806
  2. TREMFYA [Suspect]
     Active Substance: GUSELKUMAB
     Indication: PSORIATIC ARTHROPATHY
     Dosage: AT WEEK 0,WEEK 4  AND EVERY 8 WEEKD THEREAFTER
     Route: 058
     Dates: start: 201806

REACTIONS (1)
  - Alopecia [None]
